FAERS Safety Report 9943406 (Version 2)
Quarter: 2014Q1

REPORT INFORMATION
  Report Type: Spontaneous
  Country: JP (occurrence: JP)
  Receive Date: 20140303
  Receipt Date: 20140326
  Transmission Date: 20141002
  Serious: Yes (Death, Hospitalization, Other)
  Sender: FDA-Public Use
  Company Number: JP-B.I. PHARMACEUTICALS,INC./RIDGEFIELD-2014-BI-08806GD

PATIENT
  Age: 70 Year
  Sex: Male

DRUGS (1)
  1. PRADAXA [Suspect]
     Indication: INTRACARDIAC THROMBUS
     Dosage: 220 MG
     Route: 065

REACTIONS (8)
  - Metastases to liver [Fatal]
  - Ischaemic stroke [Unknown]
  - Lung neoplasm malignant [Unknown]
  - Pulmonary mass [Unknown]
  - Lymphadenopathy [Unknown]
  - Metaplasia [Unknown]
  - Trousseau^s syndrome [Unknown]
  - Off label use [Unknown]
